FAERS Safety Report 5028209-7 (Version None)
Quarter: 2006Q2

REPORT INFORMATION
  Report Type: 
  Country: None (occurrence: None)
  Receive Date: 20060613
  Receipt Date: 20060531
  Transmission Date: 20061013
  Serious: Yes (Other)
  Sender: FDA-Public Use
  Company Number: 2006071314

PATIENT
  Age: 71 Year
  Sex: Male
  Weight: 77.1115 kg

DRUGS (8)
  1. SUTENT [Suspect]
     Indication: RENAL CELL CARCINOMA STAGE UNSPECIFIED
     Dosage: 12.5 MG (12.5 MG, EVERY OTHER DAY), ORAL; SEE IMAGE
     Route: 048
     Dates: start: 20060101
  2. ZOLOFT [Concomitant]
  3. CARDIZEM [Concomitant]
  4. PREDNISONE TAB [Concomitant]
  5. PRILOSEC [Concomitant]
  6. ZOCOR [Concomitant]
  7. COMBIVENT [Concomitant]
  8. OXYGEN (OXYGEN) [Concomitant]

REACTIONS (2)
  - BLOOD URINE PRESENT [None]
  - CHROMATURIA [None]
